FAERS Safety Report 9249708 (Version 1)
Quarter: 2013Q2

REPORT INFORMATION
  Report Type: Spontaneous
  Country: US (occurrence: US)
  Receive Date: 20130423
  Receipt Date: 20130423
  Transmission Date: 20140414
  Serious: Yes (Other)
  Sender: FDA-Public Use
  Company Number: US-WATSON-2013-06693

PATIENT
  Age: 38 Year
  Sex: Female

DRUGS (10)
  1. SUXAMETHONIUM (UNKNOWN) [Suspect]
     Indication: ENDOTRACHEAL INTUBATION
     Dosage: 120 MG, SINGLE
     Route: 042
  2. HYDROXYCHLOROQUINE SULFATE (WATSON LABORATORIES) [Suspect]
     Indication: PRODUCT USED FOR UNKNOWN INDICATION
     Dosage: 200 MG, BID
     Route: 065
  3. PREDNISONE (UNKNOWN) [Suspect]
     Indication: PRODUCT USED FOR UNKNOWN INDICATION
     Dosage: 22.5 MG, DAILY
     Route: 065
  4. COLACE [Concomitant]
     Indication: PRODUCT USED FOR UNKNOWN INDICATION
     Dosage: 100 MG, TID
     Route: 065
  5. SENNA                              /00142201/ [Concomitant]
     Indication: PRODUCT USED FOR UNKNOWN INDICATION
     Dosage: UNK, NIGHTLY
     Route: 065
  6. RANITIDINE [Concomitant]
     Indication: PRODUCT USED FOR UNKNOWN INDICATION
     Dosage: 150 MG, BID
     Route: 065
  7. BACLOFEN [Concomitant]
     Indication: PRODUCT USED FOR UNKNOWN INDICATION
     Dosage: 20 MG, QID
     Route: 065
  8. TOPIRAMATE [Concomitant]
     Indication: PRODUCT USED FOR UNKNOWN INDICATION
     Dosage: 50 MG, DAILY, AT NIGHT
     Route: 065
  9. HEPARIN                            /00027704/ [Concomitant]
     Indication: PROPHYLAXIS
     Dosage: UNKNOWN, INJECTIONS
     Route: 058
  10. ETOMIDATE [Concomitant]
     Indication: ENDOTRACHEAL INTUBATION
     Dosage: 20 MG, SINGLE
     Route: 042

REACTIONS (8)
  - Hyperkalaemia [Recovered/Resolved]
  - Arrhythmia [Recovered/Resolved]
  - Dyspnoea [None]
  - Blood pressure diastolic decreased [None]
  - Tachypnoea [None]
  - Multiple sclerosis relapse [None]
  - Pneumonia [None]
  - Staphylococcal bacteraemia [None]
